FAERS Safety Report 6748486-1 (Version None)
Quarter: 2010Q2

REPORT INFORMATION
  Report Type: 
  Country: None (occurrence: None)
  Receive Date: 20100527
  Receipt Date: 20100527
  Transmission Date: 20101027
  Serious: Yes (Hospitalization)
  Sender: FDA-Public Use
  Company Number: None

PATIENT
  Age: 47 Year
  Sex: Female
  Weight: 72.5755 kg

DRUGS (1)
  1. SPIRONOLACTONE [Suspect]
     Indication: ACNE
     Dosage: ONE DAILY PO
     Route: 048
     Dates: start: 20100318, end: 20100429

REACTIONS (12)
  - BREAST ENLARGEMENT [None]
  - BREAST PAIN [None]
  - CHEST PAIN [None]
  - DEPRESSION [None]
  - FATIGUE [None]
  - HYPERSENSITIVITY [None]
  - MENSTRUATION IRREGULAR [None]
  - MICROVASCULAR ANGINA [None]
  - MUSCLE SPASMS [None]
  - MYOCARDIAL INFARCTION [None]
  - PALPITATIONS [None]
  - SWELLING [None]
